FAERS Safety Report 21015573 (Version 1)
Quarter: 2022Q2

REPORT INFORMATION
  Report Type: Spontaneous
  Country: US (occurrence: US)
  Receive Date: 20220628
  Receipt Date: 20220628
  Transmission Date: 20220720
  Serious: Yes (Hospitalization, Other)
  Sender: FDA-Public Use
  Company Number: US-CATALENT PHARMA SOLUTIONS-CAT-000017-2022

PATIENT
  Age: 34 Year
  Sex: Female

DRUGS (24)
  1. VALPROIC ACID [Suspect]
     Active Substance: VALPROIC ACID
     Indication: Affective disorder
     Dosage: 500 MILLIGRAM PER DAY, (DAY 1)
     Route: 065
  2. VALPROIC ACID [Suspect]
     Active Substance: VALPROIC ACID
     Indication: Seizure prophylaxis
     Dosage: 1000 MILLIGRAM PER DAY, (DAY 2 TO DAY 23)
     Route: 065
  3. CLOZAPINE [Suspect]
     Active Substance: CLOZAPINE
     Indication: Product used for unknown indication
     Dosage: 25 MILLIGRAM, QD, DAY 1 AND DAY 2
     Route: 065
  4. CLOZAPINE [Suspect]
     Active Substance: CLOZAPINE
     Dosage: 50 MILLIGRAM, QD, ON DAY 6
     Route: 065
  5. CLOZAPINE [Suspect]
     Active Substance: CLOZAPINE
     Dosage: 75 MILLIGRAM, QD, ON DAY 9
     Route: 065
  6. CLOZAPINE [Suspect]
     Active Substance: CLOZAPINE
     Dosage: 100 MILLIGRAM, QD, ON DAY 13
     Route: 065
  7. CLOZAPINE [Suspect]
     Active Substance: CLOZAPINE
     Dosage: 150 MILLIGRAM, QD, ON DAY 16
     Route: 065
  8. CLOZAPINE [Suspect]
     Active Substance: CLOZAPINE
     Dosage: 75 MILLIGRAM, QD, ON DAY 18
     Route: 065
  9. ZIPRASIDONE [Concomitant]
     Active Substance: ZIPRASIDONE
     Indication: Product used for unknown indication
     Dosage: 160 MILLIGRAM, QD, ON DAY 0
     Route: 065
  10. ZIPRASIDONE [Concomitant]
     Active Substance: ZIPRASIDONE
     Dosage: 120 MILLIGRAM, QD, ON DAY 1 AND DAY 2
     Route: 065
  11. ZIPRASIDONE [Concomitant]
     Active Substance: ZIPRASIDONE
     Dosage: 100 MILLIGRAM, QD, ON DAY 6
     Route: 065
  12. ZIPRASIDONE [Concomitant]
     Active Substance: ZIPRASIDONE
     Dosage: 80 MILLIGRAM, QD, ON DAY 9 AND DAY 13
     Route: 065
  13. ZIPRASIDONE [Concomitant]
     Active Substance: ZIPRASIDONE
     Dosage: 60 MILLIGRAM, QD, ON DAY 16
     Route: 065
  14. ZIPRASIDONE [Concomitant]
     Active Substance: ZIPRASIDONE
     Dosage: 40 MILLIGRAM, QD, DAY 18,DAY 19, DAY 22 AND DAY 23
     Route: 065
  15. ZIPRASIDONE [Concomitant]
     Active Substance: ZIPRASIDONE
     Dosage: UNK
  16. OLANZAPINE [Concomitant]
     Active Substance: OLANZAPINE
     Indication: Product used for unknown indication
     Dosage: 5 MILLIGRAM, QD, DAY 1, DAY 2, DAY 6 AND DAY 9
     Route: 065
  17. OLANZAPINE [Concomitant]
     Active Substance: OLANZAPINE
     Dosage: 10 MILLIGRAM, QD, DAY 13
     Route: 065
  18. MELATONIN [Concomitant]
     Active Substance: MELATONIN
     Indication: Product used for unknown indication
     Dosage: 10 MILLIGRAM, QD, DAY 6, DAY 9, DAY 13, DAY 16, DAY 18, DAY 19, DAY 22 AND DAY 23
     Route: 065
  19. OMEPRAZOLE [Concomitant]
     Active Substance: OMEPRAZOLE
     Indication: Product used for unknown indication
     Dosage: 40 MILLIGRAM, QD, DAY 13, DAY 16, DAY 18, DAY 19, DAY 22 AND DAY 23
     Route: 065
  20. IBUPROFEN [Concomitant]
     Active Substance: IBUPROFEN
     Indication: Pain
     Dosage: 400 MILLIGRAM, QD, DAY 13
     Route: 065
  21. ONDANSETRON [Concomitant]
     Active Substance: ONDANSETRON
     Indication: Nausea
     Dosage: 8 MILLIGRAM, QD, DAY 16
     Route: 065
  22. CEFTRIAXONE [Concomitant]
     Active Substance: CEFTRIAXONE
     Indication: Urinary tract infection
     Dosage: 1000 MILLIGRAM, QD, DAY 19
     Route: 042
  23. ENOXAPARIN [Concomitant]
     Active Substance: ENOXAPARIN
     Indication: Product used for unknown indication
     Dosage: 40 MILLIGRAM, QD, DAY 19 AND DAY 22
     Route: 058
  24. RISPERIDONE [Concomitant]
     Active Substance: RISPERIDONE
     Indication: Product used for unknown indication
     Dosage: 1 MILLIGRAM, QD, DAY 23
     Route: 065

REACTIONS (3)
  - Myocarditis [Recovered/Resolved]
  - Drug interaction [Recovered/Resolved]
  - Product use in unapproved indication [Unknown]
